FAERS Safety Report 16736911 (Version 1)
Quarter: 2019Q3

REPORT INFORMATION
  Report Type: Report from Study
  Country: FR (occurrence: FR)
  Receive Date: 20190823
  Receipt Date: 20190823
  Transmission Date: 20191005
  Serious: Yes (Death, Hospitalization, Other)
  Sender: FDA-Public Use
  Company Number: FR-PURDUE PHARMA-GBR-2019-0069445

PATIENT

DRUGS (8)
  1. OXYCODONE HYDROCHLORIDE. [Suspect]
     Active Substance: OXYCODONE HYDROCHLORIDE
     Indication: ANALGESIC THERAPY
     Dosage: 4 MG, UNK
     Route: 042
     Dates: start: 20151120, end: 20151121
  2. CICLOSPORINE [Suspect]
     Active Substance: CYCLOSPORINE
     Indication: PROPHYLAXIS AGAINST GRAFT VERSUS HOST DISEASE
     Dosage: 50 MG, UNK
     Route: 042
     Dates: start: 20151120, end: 20151121
  3. LEVOTHYROXIN [Concomitant]
     Active Substance: LEVOTHYROXINE
     Dosage: 10 MCG, UNK (100 MCG FROM MONDAY TO STURDAY)
     Route: 065
  4. FUROSEMIDE. [Suspect]
     Active Substance: FUROSEMIDE
     Indication: RENAL FAILURE
     Dosage: 500 MG, UNK
     Route: 042
     Dates: start: 20151120, end: 20151121
  5. MORPHINE [Suspect]
     Active Substance: MORPHINE
     Indication: ANALGESIC THERAPY
     Dosage: 10 MG, UNK
     Route: 042
     Dates: start: 20151121, end: 20151121
  6. CIPROFLOXACIN. [Suspect]
     Active Substance: CIPROFLOXACIN
     Indication: ANTIBIOTIC THERAPY
     Dosage: (400MG/200 ML)
     Route: 042
     Dates: start: 20151121, end: 20151121
  7. LEVOTHYROXIN [Concomitant]
     Active Substance: LEVOTHYROXINE
     Indication: HYPOTHYROIDISM
     Dosage: 125 MCG, WEEKLY (125 MCG ON SUNDAY)
  8. DEFIBROTIDE [Suspect]
     Active Substance: DEFIBROTIDE (BOVINE)
     Indication: VENOOCCLUSIVE LIVER DISEASE
     Dosage: 25 MG/KG, DAILY (25 MG/KG/DAY)
     Route: 065
     Dates: start: 20151120, end: 20151121

REACTIONS (2)
  - Drug ineffective [Fatal]
  - Multiple organ dysfunction syndrome [Fatal]

NARRATIVE: CASE EVENT DATE: 201511
